FAERS Safety Report 8327623-1 (Version None)
Quarter: 2012Q2

REPORT INFORMATION
  Report Type: 
  Country: None (occurrence: None)
  Receive Date: 20120430
  Receipt Date: 20120412
  Transmission Date: 20120825
  Serious: Yes (Other)
  Sender: FDA-Public Use
  Company Number: HRA-MET20120009

PATIENT
  Age: 56 Year
  Sex: Female

DRUGS (2)
  1. METYRAPONE (METYRAPONE) [Suspect]
     Indication: PRODUCT USED FOR UNKNOWN INDICATION
  2. DEXAMETHASONE [Concomitant]

REACTIONS (2)
  - MASS [None]
  - ADRENAL ATROPHY [None]
